FAERS Safety Report 8348861-8 (Version None)
Quarter: 2012Q2

REPORT INFORMATION
  Report Type: 
  Country: None (occurrence: None)
  Receive Date: 20120508
  Receipt Date: 20120423
  Transmission Date: 20120825
  Serious: Yes (Hospitalization)
  Sender: FDA-Public Use
  Company Number: JPI-P-007923

PATIENT
  Age: 38 Year
  Sex: Female

DRUGS (3)
  1. XYREM [Suspect]
     Indication: CATAPLEXY
     Dosage: 4.5 GM (2.25 GM, 2 IN 1 D), ORAL
     Route: 048
     Dates: start: 20090604
  2. METHYLPHENIDATE [Concomitant]
  3. DEXTROSTAT [Concomitant]

REACTIONS (4)
  - NEPHROLITHIASIS [None]
  - DRUG EFFECT DECREASED [None]
  - RETCHING [None]
  - PRODUCT TASTE ABNORMAL [None]
